FAERS Safety Report 6164229-7 (Version None)
Quarter: 2009Q2

REPORT INFORMATION
  Report Type: 
  Country: None (occurrence: None)
  Receive Date: 20090422
  Receipt Date: 20030213
  Transmission Date: 20091009
  Serious: No
  Sender: FDA-Public Use
  Company Number: CA-SOLVAY-00303001662

PATIENT
  Age: 706 Month
  Sex: Female
  Weight: 104.32 kg

DRUGS (7)
  1. ANDROGEL [Suspect]
     Indication: ACCIDENTAL EXPOSURE
     Dosage: DAILY DOSE: UNK. FREQUENCY:UNKNOWN
     Route: 061
     Dates: start: 20021201
  2. ADALAT [Concomitant]
     Indication: BLOOD PRESSURE INCREASED
     Dosage: DAILY DOSE: UNK.
     Route: 048
  3. RISPERDAL [Concomitant]
     Indication: BIPOLAR I DISORDER
     Dosage: DAILY DOSE: 1 MG. FREQUENCY:UNKNOWN
     Route: 048
  4. DIVALPROEX SODIUM [Concomitant]
     Indication: ILL-DEFINED DISORDER
     Dosage: DAILY DOSE: UNK.
     Route: 048
  5. SEROQUIL [Concomitant]
     Indication: BIPOLAR I DISORDER
     Dosage: DAILY DOSE: 100 MG.
     Route: 048
  6. ALLURPURNOL [Concomitant]
     Indication: GOUT
     Dosage: DAILY DOSE: 200 MG.
     Route: 048
  7. OXAZIPEN [Concomitant]
     Indication: SLEEP DISORDER
     Dosage: DAILY DOSE: UNK. FREQUENCY:AS NEEDED
     Route: 048

REACTIONS (1)
  - ACNE [None]
